FAERS Safety Report 23338898 (Version 2)
Quarter: 2024Q2

REPORT INFORMATION
  Report Type: Report from Study
  Country: GB (occurrence: GB)
  Receive Date: 20231226
  Receipt Date: 20240524
  Transmission Date: 20240716
  Serious: Yes (Hospitalization)
  Sender: FDA-Public Use
  Company Number: GB-ELI_LILLY_AND_COMPANY-GB202312011627

PATIENT
  Age: 46 Year
  Sex: Female

DRUGS (1)
  1. OLUMIANT [Suspect]
     Active Substance: BARICITINIB
     Indication: Rheumatoid arthritis
     Dosage: 4 MG, DAILY
     Route: 048
     Dates: start: 2017, end: 202309

REACTIONS (3)
  - Diverticulitis intestinal perforated [Unknown]
  - Abscess intestinal [Unknown]
  - Abdominal pain lower [Recovered/Resolved]
